FAERS Safety Report 7074536-1 (Version None)
Quarter: 2010Q4

REPORT INFORMATION
  Report Type: 
  Country: None (occurrence: None)
  Receive Date: 20101029
  Receipt Date: 20101026
  Transmission Date: 20110411
  Serious: Yes (Hospitalization, Other)
  Sender: FDA-Public Use
  Company Number: US-WYE-H17693310

PATIENT
  Sex: Female
  Weight: 59.93 kg

DRUGS (1)
  1. PREMARIN [Suspect]
     Indication: VULVOVAGINAL DRYNESS
     Route: 067
     Dates: start: 20020101, end: 20100807

REACTIONS (4)
  - NECK PAIN [None]
  - PRODUCT QUALITY ISSUE [None]
  - VULVOVAGINAL BURNING SENSATION [None]
  - VULVOVAGINAL PRURITUS [None]
